FAERS Safety Report 7051573-4 (Version None)
Quarter: 2010Q4

REPORT INFORMATION
  Report Type: 
  Country: None (occurrence: None)
  Receive Date: 20101018
  Receipt Date: 20101018
  Transmission Date: 20110411
  Serious: No
  Sender: FDA-Public Use
  Company Number: None

PATIENT
  Sex: Male
  Weight: 100.2449 kg

DRUGS (1)
  1. AVODART [Suspect]
     Dosage: 1 CAPSULE BY MOUTH
     Route: 048
     Dates: start: 20100211

REACTIONS (1)
  - GYNAECOMASTIA [None]
